FAERS Safety Report 7967510-1 (Version None)
Quarter: 2011Q4

REPORT INFORMATION
  Report Type: 
  Country: None (occurrence: None)
  Receive Date: 20111209
  Receipt Date: 20110411
  Transmission Date: 20120403
  Serious: No
  Sender: FDA-Public Use
  Company Number: US-GLAXOSMITHKLINE-B0712522A

PATIENT
  Sex: Male
  Weight: 100 kg

DRUGS (1)
  1. AVANDAMET [Suspect]
     Indication: DIABETES MELLITUS
     Route: 048

REACTIONS (6)
  - HYPERTENSION [None]
  - JOINT STIFFNESS [None]
  - ELECTROCARDIOGRAM ABNORMAL [None]
  - ARTHRALGIA [None]
  - CHEST PAIN [None]
  - FLUID RETENTION [None]
